FAERS Safety Report 7789691-5 (Version None)
Quarter: 2011Q3

REPORT INFORMATION
  Report Type: 
  Country: None (occurrence: None)
  Receive Date: 20110930
  Receipt Date: 20110928
  Transmission Date: 20111222
  Serious: Yes (Hospitalization)
  Sender: FDA-Public Use
  Company Number: US-BRISTOL-MYERS SQUIBB COMPANY-16109415

PATIENT
  Age: 64 Year
  Sex: Male
  Weight: 107 kg

DRUGS (12)
  1. OXYCODONE [Concomitant]
     Dates: start: 20110915
  2. CISPLATIN [Suspect]
     Indication: NON-SMALL CELL LUNG CANCER
     Dosage: CYCLE-1,8,29,36.LAST DOSE ON 13SEP11.
     Route: 042
     Dates: start: 20110808
  3. EMEND [Concomitant]
     Dosage: TRIFOLD
     Dates: start: 20110906
  4. BACTROBAN [Concomitant]
     Dates: start: 20110906
  5. TUSSIONEX [Concomitant]
     Dates: start: 20110822
  6. MULTI-VITAMIN [Concomitant]
     Dates: start: 20110720
  7. SPIRIVA [Concomitant]
     Dates: start: 20110719
  8. SYMBICORT [Concomitant]
     Dates: start: 20110719
  9. ETOPOSIDE [Suspect]
     Indication: NON-SMALL CELL LUNG CANCER
     Dosage: CYCLE-1,5,29,33.LAST DOSE ON 09SEP11.
     Route: 042
     Dates: start: 20110808
  10. SUCRALFATE [Concomitant]
     Dates: start: 20110822
  11. ZOFRAN [Concomitant]
     Dates: start: 20110801
  12. COMPAZINE [Concomitant]
     Dates: start: 20110801

REACTIONS (2)
  - OESOPHAGITIS [None]
  - DEHYDRATION [None]
